FAERS Safety Report 11892184 (Version 1)
Quarter: 2016Q1

REPORT INFORMATION
  Report Type: Spontaneous
  Country: CA (occurrence: CA)
  Receive Date: 20160106
  Receipt Date: 20160106
  Transmission Date: 20160526
  Serious: Yes (Other)
  Sender: FDA-Public Use
  Company Number: CA-TEVA-622592ACC

PATIENT
  Age: 72 Year
  Sex: Female

DRUGS (7)
  1. BIO -K+ CL 1285 50 BILLION [Concomitant]
  2. BIO-K+ 12.5 BILLION [Concomitant]
  3. D-TABS [Concomitant]
     Active Substance: CHOLECALCIFEROL
  4. SALOFALK [Concomitant]
     Active Substance: MESALAMINE
  5. TEVA-RISEDRONATE [Suspect]
     Active Substance: RISEDRONATE SODIUM
     Indication: OSTEOPOROSIS
     Route: 048
  6. CANDESARTAN CILEXETIL. [Concomitant]
     Active Substance: CANDESARTAN CILEXETIL
  7. CHOLESTYRAMINE. [Concomitant]
     Active Substance: CHOLESTYRAMINE

REACTIONS (2)
  - Pain in extremity [Recovered/Resolved]
  - Skin ulcer [Recovered/Resolved]
